FAERS Safety Report 7582383-7 (Version None)
Quarter: 2011Q2

REPORT INFORMATION
  Report Type: 
  Country: None (occurrence: None)
  Receive Date: 20110623
  Receipt Date: 20110613
  Transmission Date: 20111010
  Serious: Yes (Death)
  Sender: FDA-Public Use
  Company Number: US-2011-10385

PATIENT
  Age: 57 Year
  Sex: Female

DRUGS (5)
  1. CYCLOSPORINE [Concomitant]
  2. METHOTREXATE [Concomitant]
  3. BUSULFEX [Suspect]
     Indication: STEM CELL TRANSPLANT
     Dosage: INTRAVENOUS
     Route: 042
  4. CYCLOPHOSPHAMIDE [Suspect]
     Indication: STEM CELL TRANSPLANT
     Dosage: 120 MG/KG,
  5. GLOBULIN (IMMUNOGLOBULIN) [Concomitant]

REACTIONS (2)
  - SEPSIS [None]
  - ACUTE GRAFT VERSUS HOST DISEASE IN SKIN [None]
